FAERS Safety Report 7302538-6 (Version None)
Quarter: 2011Q1

REPORT INFORMATION
  Report Type: 
  Country: None (occurrence: None)
  Receive Date: 20110218
  Receipt Date: 20110211
  Transmission Date: 20110831
  Serious: Yes (Other)
  Sender: FDA-Public Use
  Company Number: US-PFIZER INC-2011032052

PATIENT
  Sex: Female

DRUGS (2)
  1. LYRICA [Concomitant]
     Dosage: 300 MG, UNK
  2. EFFEXOR XR [Suspect]

REACTIONS (1)
  - WITHDRAWAL SYNDROME [None]
